FAERS Safety Report 4674129-7 (Version None)
Quarter: 2005Q2

REPORT INFORMATION
  Report Type: 
  Country: None (occurrence: None)
  Receive Date: 20050524
  Receipt Date: 20050509
  Transmission Date: 20051028
  Serious: Yes (Hospitalization)
  Sender: FDA-Public Use
  Company Number: 200503IM000120

PATIENT
  Age: 14 Year
  Sex: Male
  Weight: 42.6 kg

DRUGS (1)
  1. ACTIMMUNE [Suspect]
     Indication: CHRONIC GRANULOMATOUS DISEASE
     Dosage: 70 UG, TIW, SUBCUTANEOUS
     Route: 058

REACTIONS (5)
  - CELLULITIS [None]
  - DEEP VEIN THROMBOSIS [None]
  - DIFFICULTY IN WALKING [None]
  - GAIT DISTURBANCE [None]
  - VENOUS THROMBOSIS LIMB [None]
